FAERS Safety Report 8607970 (Version 3)
Quarter: 2013Q2

REPORT INFORMATION
  Report Type: Spontaneous
  Country: US (occurrence: US)
  Receive Date: 20120611
  Receipt Date: 20130425
  Transmission Date: 20140414
  Serious: Yes (Hospitalization, Other)
  Sender: FDA-Public Use
  Company Number: US-PFIZER INC-2012137035

PATIENT
  Age: 83 Year
  Sex: Female
  Weight: 49 kg

DRUGS (9)
  1. DILANTIN [Suspect]
     Indication: GRAND MAL CONVULSION
     Dosage: 100 MG, 2X/DAY
     Route: 042
     Dates: start: 20110807
  2. DILANTIN KAPSEAL [Suspect]
     Indication: GRAND MAL CONVULSION
     Dosage: 200 MG, TWO CAPSULES PER ORAL AT BEDTIME
     Route: 048
     Dates: start: 20110810
  3. DILANTIN-125 [Suspect]
     Indication: GRAND MAL CONVULSION
     Dosage: 150 MG, UNK
     Dates: start: 201110, end: 201110
  4. COUMADIN [Concomitant]
     Indication: ATRIAL FIBRILLATION
     Dosage: 3 MG, 1X/DAY
     Route: 048
  5. IMDUR [Concomitant]
     Indication: CARDIAC DISORDER
     Dosage: 30 MG, 1X/DAY
  6. NORVASC [Concomitant]
     Dosage: 5 MG, 1X/DAY
  7. NORVASC [Concomitant]
     Dosage: 10 MG, 1X/DAY
  8. LASIX [Concomitant]
     Dosage: 40 MG, 1X/DAY
  9. SYNTHROID [Concomitant]
     Dosage: 25 UG, 1X/DAY

REACTIONS (1)
  - Stevens-Johnson syndrome [Recovering/Resolving]
